FAERS Safety Report 10783209 (Version 1)
Quarter: 2015Q1

REPORT INFORMATION
  Report Type: Spontaneous
  Country: US (occurrence: US)
  Receive Date: 20150210
  Receipt Date: 20150210
  Transmission Date: 20150721
  Serious: No
  Sender: FDA-Public Use
  Company Number: US-009507513-1501USA009929

PATIENT
  Age: 55 Year
  Sex: Female

DRUGS (2)
  1. INTRON A [Suspect]
     Active Substance: INTERFERON ALFA-2B
     Indication: MELANOMA RECURRENT
     Dosage: 10 MU/M2 3 TIMES A WEEK
     Route: 058
     Dates: start: 2011, end: 201203
  2. INTRON A [Suspect]
     Active Substance: INTERFERON ALFA-2B
     Indication: MELANOMA RECURRENT
     Dosage: 20 MU/M2 DAILY 5 TIMES A WEEK FOR 20 TOTAL DOSES
     Route: 042
     Dates: start: 2011, end: 201203

REACTIONS (5)
  - Nausea [Unknown]
  - Pain [Unknown]
  - Influenza like illness [Unknown]
  - Fatigue [Unknown]
  - Neutropenia [Unknown]

NARRATIVE: CASE EVENT DATE: 201112
